FAERS Safety Report 5609082-2 (Version None)
Quarter: 2008Q1

REPORT INFORMATION
  Report Type: 
  Country: None (occurrence: None)
  Receive Date: 20080130
  Receipt Date: 20080130
  Transmission Date: 20080703
  Serious: Yes (Hospitalization)
  Sender: FDA-Public Use
  Company Number: None

PATIENT
  Sex: Male
  Weight: 63.1 kg

DRUGS (7)
  1. CYCLOPHOSPHAMIDE [Suspect]
     Dosage: 3725 MG
  2. ETOPOSIDE [Suspect]
     Dosage: 850 MG
  3. G-CSF (FILGRASTIM,AMGEN) [Suspect]
     Dosage: 4200 MG
  4. LEUCOVORIN CALCIUM [Suspect]
     Dosage: 125 MG
  5. METHOTREXATE [Suspect]
     Dosage: 8350 MG
  6. BACTRIM [Concomitant]
  7. FLUCONAZOLE [Concomitant]

REACTIONS (3)
  - BLOOD ALBUMIN DECREASED [None]
  - DRUG TOXICITY [None]
  - LABORATORY TEST ABNORMAL [None]
